FAERS Safety Report 5064646-2 (Version None)
Quarter: 2006Q3

REPORT INFORMATION
  Report Type: 
  Country: None (occurrence: None)
  Receive Date: 20060728
  Receipt Date: 20060620
  Transmission Date: 20061208
  Serious: Yes (Hospitalization)
  Sender: FDA-Public Use
  Company Number: US-ROCHE-452688

PATIENT
  Age: 43 Year
  Sex: Female

DRUGS (6)
  1. PEGASYS [Suspect]
     Dosage: ROUTE: REPORTED AS INJ.
     Route: 050
     Dates: start: 20060503, end: 20060526
  2. PEGASYS [Suspect]
     Dosage: ROUTE: REPORTED AS INJ.
     Route: 050
     Dates: start: 20060526
  3. COPEGUS [Suspect]
     Route: 048
     Dates: start: 20060503, end: 20060526
  4. COPEGUS [Suspect]
     Route: 048
     Dates: start: 20060526, end: 20060620
  5. COPEGUS [Suspect]
     Route: 048
     Dates: start: 20060620
  6. VICODIN [Concomitant]
     Indication: PAIN
     Dosage: TEMPORARILY INTERRUPTED AFTER SURGERY IN MAY 2006.

REACTIONS (17)
  - ABDOMINAL CAVITY DRAINAGE [None]
  - ANTIDEPRESSANT THERAPY [None]
  - APPENDICECTOMY [None]
  - ARTHRALGIA [None]
  - ASTHENIA [None]
  - BACK PAIN [None]
  - COLECTOMY [None]
  - CYST [None]
  - FATIGUE [None]
  - FLANK PAIN [None]
  - IMPAIRED WORK ABILITY [None]
  - MENTAL DISORDER [None]
  - PROCEDURAL PAIN [None]
  - RECTAL DISCHARGE [None]
  - RED BLOOD CELL COUNT DECREASED [None]
  - URINARY TRACT INFECTION [None]
  - VAGINAL DISCHARGE [None]
